FAERS Safety Report 4667049-5 (Version None)
Quarter: 2005Q2

REPORT INFORMATION
  Report Type: 
  Country: None (occurrence: None)
  Receive Date: 20050520
  Receipt Date: 20041201
  Transmission Date: 20051028
  Serious: Yes (Other)
  Sender: FDA-Public Use
  Company Number: PHEH2004US12822

PATIENT
  Age: 70 Year
  Sex: Male
  Weight: 43 kg

DRUGS (13)
  1. DEXAMETHASONE [Concomitant]
     Dosage: 4 MG, QID
     Dates: start: 20011215, end: 20011221
  2. PERCOCET [Concomitant]
     Dosage: 1 TABLET Q4-6 HOURS/PRN
  3. METOCLOPRAMIDE [Concomitant]
     Dosage: 10 MG, Q8H/PRN
  4. MIRALAX [Concomitant]
     Dosage: 17 G, QD
  5. CELEXA [Concomitant]
     Dosage: 20 MG, QD
  6. PEPCID [Concomitant]
     Dosage: 20 MG, QD
  7. DULCOLAX [Concomitant]
     Dosage: 5MG BID/PRN
  8. ZESTRIL [Concomitant]
     Dosage: 10 MG, QD
  9. MS CONTIN [Concomitant]
     Dosage: 15 MG, TID
  10. CALCIUM CITRATE [Concomitant]
  11. SAMARIUM [153 SM] LEXIDRONAM PENTASODIUM [Concomitant]
  12. AREDIA [Suspect]
     Indication: METASTASES TO BONE
     Dosage: UNK, UNK
     Dates: start: 20011217
  13. ZOMETA [Suspect]
     Indication: METASTASES TO BONE
     Dosage: 4MG Q4WKS
     Dates: end: 20041101

REACTIONS (27)
  - ACUTE SINUSITIS [None]
  - ANAEMIA [None]
  - ASEPTIC NECROSIS BONE [None]
  - BACTERAEMIA [None]
  - BONE DEBRIDEMENT [None]
  - BONE DEVELOPMENT ABNORMAL [None]
  - BONE DISORDER [None]
  - BONE EROSION [None]
  - DENTAL CARIES [None]
  - DEPRESSION [None]
  - ERYTHEMA [None]
  - FALL [None]
  - GINGIVAL SWELLING [None]
  - IMPAIRED HEALING [None]
  - LOCALISED INFECTION [None]
  - LOSS OF CONSCIOUSNESS [None]
  - OSTEOMYELITIS [None]
  - OSTEONECROSIS [None]
  - OSTEOSCLEROSIS [None]
  - PAIN IN JAW [None]
  - RADIATION INJURY [None]
  - SINUS DISORDER [None]
  - SKIN DISORDER [None]
  - TOOTH EXTRACTION [None]
  - TOOTH IMPACTED [None]
  - TOOTHACHE [None]
  - URINARY TRACT INFECTION [None]
